FAERS Safety Report 12672471 (Version 1)
Quarter: 2016Q3

REPORT INFORMATION
  Report Type: Spontaneous
  Country: US (occurrence: US)
  Receive Date: 20160822
  Receipt Date: 20160822
  Transmission Date: 20161109
  Serious: No
  Sender: FDA-Public Use
  Company Number: US-JNJFOC-20160710210

PATIENT
  Age: 55 Year
  Sex: Male
  Weight: 68.04 kg

DRUGS (5)
  1. MENS ROGAINE EXTRA STRENGTH [Suspect]
     Active Substance: MINOXIDIL
     Route: 061
  2. MENS ROGAINE EXTRA STRENGTH [Suspect]
     Active Substance: MINOXIDIL
     Indication: ALOPECIA
     Dosage: SMALL AMMOUNT
     Route: 061
  3. NIZORAL A-D [Suspect]
     Active Substance: KETOCONAZOLE
     Indication: ALOPECIA
     Route: 061
     Dates: start: 20160704, end: 20160708
  4. NIZORAL A-D [Suspect]
     Active Substance: KETOCONAZOLE
     Route: 061
  5. CIALIS [Concomitant]
     Active Substance: TADALAFIL
     Indication: ALOPECIA
     Dosage: 8 MONTHS
     Route: 065

REACTIONS (3)
  - Skin mass [Not Recovered/Not Resolved]
  - Headache [Not Recovered/Not Resolved]
  - Hair disorder [Recovered/Resolved]

NARRATIVE: CASE EVENT DATE: 20160708
